FAERS Safety Report 8094347-8 (Version None)
Quarter: 2012Q1

REPORT INFORMATION
  Report Type: 
  Country: None (occurrence: None)
  Receive Date: 20120130
  Receipt Date: 20120123
  Transmission Date: 20120608
  Serious: No
  Sender: FDA-Public Use
  Company Number: US-PFIZER INC-2012019532

PATIENT
  Sex: Female
  Weight: 54.422 kg

DRUGS (2)
  1. LIPITOR [Concomitant]
     Indication: BLOOD TRIGLYCERIDES INCREASED
     Dosage: 10 MG DAILY
  2. LATANOPROST [Suspect]
     Indication: GLAUCOMA
     Dosage: ONE DROP IN EACH EYE DAILY
     Route: 047
     Dates: start: 20110101, end: 20110101

REACTIONS (1)
  - LACRIMATION INCREASED [None]
